FAERS Safety Report 24775988 (Version 2)
Quarter: 2025Q1

REPORT INFORMATION
  Report Type: Report from Study
  Country: CA (occurrence: CA)
  Receive Date: 20241226
  Receipt Date: 20250107
  Transmission Date: 20250408
  Serious: Yes (Other)
  Sender: NOVARTIS
  Company Number: CA-002147023-NVSC2024CA182290

PATIENT
  Age: 60 Year
  Sex: Female

DRUGS (1)
  1. KESIMPTA [Suspect]
     Active Substance: OFATUMUMAB
     Indication: Relapsing-remitting multiple sclerosis
     Dosage: 20 MG, QMO
     Route: 058
     Dates: start: 20240909

REACTIONS (3)
  - Deafness unilateral [Unknown]
  - Pyrexia [Unknown]
  - Discomfort [Unknown]

NARRATIVE: CASE EVENT DATE: 20240909
